FAERS Safety Report 9495493 (Version 1)
Quarter: 2013Q3

REPORT INFORMATION
  Report Type: Spontaneous
  Country: US (occurrence: US)
  Receive Date: 20130903
  Receipt Date: 20130903
  Transmission Date: 20140515
  Serious: No
  Sender: FDA-Public Use
  Company Number: US-SANOFI-AVENTIS-2013SA025079

PATIENT
  Age: 66 Year
  Sex: Male

DRUGS (3)
  1. ALLEGRA [Suspect]
     Indication: ANGIOEDEMA
     Route: 048
     Dates: start: 20130307
  2. VALIUM [Concomitant]
     Indication: EPILEPSY
  3. PRIMIDONE [Concomitant]
     Indication: EPILEPSY

REACTIONS (2)
  - Somnolence [Unknown]
  - Dizziness [Recovered/Resolved]
